FAERS Safety Report 13898683 (Version 1)
Quarter: 2017Q3

REPORT INFORMATION
  Report Type: Spontaneous
  Country: US (occurrence: None)
  Receive Date: 20170822
  Receipt Date: 20170822
  Transmission Date: 20171127
  Serious: No
  Sender: FDA-Public Use
  Company Number: None

PATIENT
  Age: 52 Year
  Sex: Female
  Weight: 72.94 kg

DRUGS (1)
  1. GENERIC TOPAMAX [Suspect]
     Active Substance: TOPIRAMATE
     Indication: SCHIZOAFFECTIVE DISORDER
     Route: 048
     Dates: start: 20100331

REACTIONS (2)
  - Weight increased [None]
  - Nausea [None]

NARRATIVE: CASE EVENT DATE: 20100331
